FAERS Safety Report 7247727-4 (Version None)
Quarter: 2011Q1

REPORT INFORMATION
  Report Type: 
  Country: None (occurrence: None)
  Receive Date: 20110127
  Receipt Date: 20110119
  Transmission Date: 20110831
  Serious: Yes (Other)
  Sender: FDA-Public Use
  Company Number: CA-JNJFOC-20110105685

PATIENT
  Sex: Female
  Weight: 85 kg

DRUGS (7)
  1. METHOTREXATE [Concomitant]
  2. VALIUM [Concomitant]
  3. VENTOLIN [Concomitant]
  4. SYMBICORT [Concomitant]
  5. REMICADE [Suspect]
     Indication: ANKYLOSING SPONDYLITIS
     Route: 042
  6. SYNTHROID [Concomitant]
  7. MOS [Concomitant]

REACTIONS (2)
  - MEDICAL DEVICE COMPLICATION [None]
  - MYOCARDIAL INFARCTION [None]
